FAERS Safety Report 9379774 (Version 1)
Quarter: 2013Q3

REPORT INFORMATION
  Report Type: Spontaneous
  Country: US (occurrence: None)
  Receive Date: 20130701
  Receipt Date: 20130701
  Transmission Date: 20140515
  Serious: Yes (Death, Hospitalization, Disabling)
  Sender: FDA-Public Use
  Company Number: None

PATIENT
  Age: 74 Year
  Sex: Male
  Weight: 56.7 kg

DRUGS (2)
  1. IBRITUMOMB TIUXTN [Suspect]
     Indication: NO THERAPEUTIC RESPONSE
     Dosage: 1 DOSE  1 TIME
     Dates: start: 20130423, end: 20130423
  2. HEMATOPOIETIC NUCLEAR TX [Suspect]
     Indication: NO THERAPEUTIC RESPONSE
     Dosage: 1 DOSE  1 TIME
     Dates: start: 20130423, end: 20130423

REACTIONS (3)
  - Dyskinesia [None]
  - Movement disorder [None]
  - Dysstasia [None]
